FAERS Safety Report 13156860 (Version 1)
Quarter: 2017Q1

REPORT INFORMATION
  Report Type: Other
  Country: US (occurrence: US)
  Receive Date: 20170127
  Receipt Date: 20170127
  Transmission Date: 20170428
  Serious: Yes (Hospitalization)
  Sender: FDA-Public Use
  Company Number: US-LUPIN PHARMACEUTICALS INC.-2016-04873

PATIENT
  Age: 38 Year
  Sex: Male
  Weight: 117 kg

DRUGS (1)
  1. CALCIUM ACETATE. [Suspect]
     Active Substance: CALCIUM ACETATE
     Indication: HYPOCALCAEMIA
     Route: 048

REACTIONS (1)
  - Hypercalcaemia [Recovered/Resolved]
